FAERS Safety Report 24551291 (Version 1)
Quarter: 2024Q4

REPORT INFORMATION
  Report Type: Spontaneous
  Country: US (occurrence: US)
  Receive Date: 20241025
  Receipt Date: 20241025
  Transmission Date: 20250115
  Serious: No
  Sender: ABBVIE
  Company Number: US-ABBVIE-5973036

PATIENT
  Sex: Female

DRUGS (1)
  1. LUPRON [Suspect]
     Active Substance: LEUPROLIDE ACETATE
     Indication: Infertility
     Dosage: FORM STRENGTH: 3.75 MILLIGRAM
     Route: 065
     Dates: start: 2022

REACTIONS (1)
  - Off label use [Not Recovered/Not Resolved]
